FAERS Safety Report 20244779 (Version 1)
Quarter: 2021Q4

REPORT INFORMATION
  Report Type: Spontaneous
  Country: ES (occurrence: None)
  Receive Date: 20211229
  Receipt Date: 20211229
  Transmission Date: 20220303
  Serious: Yes (Other)
  Sender: FDA-Public Use
  Company Number: ES-INFO-001382

PATIENT
  Age: 69 Year
  Sex: Male

DRUGS (3)
  1. METRONIDAZOLE [Suspect]
     Active Substance: METRONIDAZOLE
     Indication: Brain abscess
     Dosage: METRONIDAZOLE 10 MG / KG PER INTRAVENOUSLY EVERY 8 HOURS.
     Route: 042
  2. CEFTRIAXONE [Concomitant]
     Active Substance: CEFTRIAXONE
     Indication: Brain abscess
     Dosage: CEFTRIAXONE IS STARTED 2 G INTRAVENOUSLY EVERY 12 HOURS
     Route: 042
  3. FLUCONAZOLE [Concomitant]
     Active Substance: FLUCONAZOLE
     Indication: Urinary tract candidiasis
     Route: 042

REACTIONS (1)
  - Cerebellar syndrome [Recovered/Resolved]
